FAERS Safety Report 19627732 (Version 2)
Quarter: 2021Q3

REPORT INFORMATION
  Report Type: Report from Study
  Country: None (occurrence: US)
  Receive Date: 20210729
  Receipt Date: 20210808
  Transmission Date: 20211014
  Serious: Yes (Other)
  Sender: FDA-Public Use
  Company Number: US-ABBVIE-21K-163-4006962-00

PATIENT
  Age: 75 Year
  Sex: Female
  Weight: 70.82 kg

DRUGS (3)
  1. PFIZER?BIONTECH COVID?19 VACCINE [Concomitant]
     Active Substance: TOZINAMERAN
     Dosage: PFIZER
     Route: 030
     Dates: start: 20210301, end: 20210301
  2. PFIZER?BIONTECH COVID?19 VACCINE [Concomitant]
     Active Substance: TOZINAMERAN
     Indication: COVID-19 IMMUNISATION
     Dosage: PFIZER
     Route: 030
     Dates: start: 202102, end: 202102
  3. SKYRIZI [Suspect]
     Active Substance: RISANKIZUMAB-RZAA
     Indication: PSORIASIS
     Dosage: STARTER DOSE
     Route: 058
     Dates: start: 20210412, end: 20210511

REACTIONS (2)
  - Malignant melanoma [Unknown]
  - Malignant melanoma in situ [Recovering/Resolving]

NARRATIVE: CASE EVENT DATE: 20210707
